FAERS Safety Report 6499081-3 (Version None)
Quarter: 2009Q4

REPORT INFORMATION
  Report Type: 
  Country: None (occurrence: None)
  Receive Date: 20091215
  Receipt Date: 20091207
  Transmission Date: 20100525
  Serious: Yes (Hospitalization, Other)
  Sender: FDA-Public Use
  Company Number: US-WYE-H12503209

PATIENT
  Sex: Male

DRUGS (4)
  1. RAPAMUNE [Suspect]
     Indication: HEART TRANSPLANT REJECTION
     Route: 048
     Dates: start: 20090701
  2. MYCOPHENOLATE MOFETIL [Concomitant]
  3. PREDNISONE [Concomitant]
  4. VORICONAZOLE [Suspect]
     Indication: RESPIRATORY TRACT INFECTION
     Dosage: UNSPECIFIED
     Dates: start: 20091128, end: 20090101

REACTIONS (2)
  - NEPHROPATHY TOXIC [None]
  - RESPIRATORY TRACT INFECTION [None]
